FAERS Safety Report 4343189-5 (Version None)
Quarter: 2004Q1

REPORT INFORMATION
  Report Type: 
  Country: None (occurrence: None)
  Receive Date: 20040325
  Receipt Date: 20031210
  Transmission Date: 20041129
  Serious: No
  Sender: FDA-Public Use
  Company Number: USA031254423

PATIENT
  Age: 91 Year
  Sex: Male

DRUGS (2)
  1. FORTEO [Suspect]
  2. LANTUS [Concomitant]

REACTIONS (4)
  - BLOOD GLUCOSE INCREASED [None]
  - DIARRHOEA [None]
  - GASTROENTERITIS VIRAL [None]
  - ILL-DEFINED DISORDER [None]
